FAERS Safety Report 8523680-8 (Version None)
Quarter: 2012Q3

REPORT INFORMATION
  Report Type: 
  Country: None (occurrence: None)
  Receive Date: 20120720
  Receipt Date: 20120716
  Transmission Date: 20120928
  Serious: Yes (Other)
  Sender: FDA-Public Use
  Company Number: US-PFIZER INC-2012171490

PATIENT
  Sex: Male
  Weight: 93.878 kg

DRUGS (3)
  1. GABAPENTIN [Suspect]
     Indication: HEADACHE
  2. GABAPENTIN [Suspect]
     Indication: BACK PAIN
     Dosage: 300 MG, 3X/DAY
     Route: 048
     Dates: start: 20120501, end: 20120701
  3. GABAPENTIN [Suspect]
     Indication: MUSCULOSKELETAL PAIN

REACTIONS (3)
  - WEIGHT DECREASED [None]
  - ABDOMINAL PAIN UPPER [None]
  - BLOOD TRIGLYCERIDES INCREASED [None]
